FAERS Safety Report 6580760-4 (Version None)
Quarter: 2010Q1

REPORT INFORMATION
  Report Type: 
  Country: None (occurrence: None)
  Receive Date: 20100212
  Receipt Date: 20091215
  Transmission Date: 20100710
  Serious: No
  Sender: FDA-Public Use
  Company Number: US-ALLERGAN-0917216US

PATIENT
  Sex: Female

DRUGS (4)
  1. SANCTURA XR [Suspect]
     Indication: HYPERTONIC BLADDER
     Dosage: 60 MG, QD
     Route: 048
  2. CLACIUM [Concomitant]
  3. FISH OIL [Concomitant]
  4. ZINC [Concomitant]

REACTIONS (1)
  - ALOPECIA [None]
